FAERS Safety Report 8726559 (Version 2)
Quarter: 2013Q3

REPORT INFORMATION
  Report Type: Report from Study
  Country: US (occurrence: US)
  Receive Date: 20120816
  Receipt Date: 20130910
  Transmission Date: 20140515
  Serious: Yes (Hospitalization)
  Sender: FDA-Public Use
  Company Number: PHEH2012US015712

PATIENT
  Sex: Female

DRUGS (1)
  1. DIOVAN HCT [Suspect]

REACTIONS (9)
  - Cystitis [Unknown]
  - Cardiac failure [Unknown]
  - Cardiac infection [Unknown]
  - Kidney infection [Unknown]
  - Renal failure [Unknown]
  - Dehydration [Unknown]
  - Pollakiuria [Unknown]
  - Disturbance in social behaviour [Unknown]
  - Muscle spasms [Unknown]
